FAERS Safety Report 4739025-5 (Version None)
Quarter: 2005Q3

REPORT INFORMATION
  Report Type: 
  Country: None (occurrence: None)
  Receive Date: 20050801
  Receipt Date: 20041216
  Transmission Date: 20060218
  Serious: Yes (Hospitalization)
  Sender: FDA-Public Use
  Company Number: 210996

PATIENT
  Sex: Female

DRUGS (1)
  1. RITUXAN [Suspect]
     Dosage: 375 MG/M2, 1/WEEK
     Dates: start: 20041124, end: 20041201

REACTIONS (1)
  - EJECTION FRACTION DECREASED [None]
